FAERS Safety Report 4464686-8 (Version None)
Quarter: 2004Q3

REPORT INFORMATION
  Report Type: 
  Country: None (occurrence: None)
  Receive Date: 20040929
  Receipt Date: 20040909
  Transmission Date: 20050211
  Serious: Yes (Death, Other)
  Sender: FDA-Public Use
  Company Number: JP_040402962

PATIENT
  Age: 73 Year
  Sex: Male
  Weight: 50 kg

DRUGS (5)
  1. GEMZAR [Suspect]
     Indication: NON-SMALL CELL LUNG CANCER RECURRENT
     Dosage: 1150 MG OTHER
     Route: 050
     Dates: start: 20030224, end: 20030324
  2. DOCETAXEL [Concomitant]
  3. 5-HT3RCEPTOR ANTAGONIST [Concomitant]
  4. RINDERON 9BETAMETHASONE0 [Concomitant]
  5. MORPHINE [Concomitant]

REACTIONS (33)
  - ALOPECIA [None]
  - ANOREXIA [None]
  - AORTIC ATHEROSCLEROSIS [None]
  - BLOOD LACTATE DEHYDROGENASE INCREASED [None]
  - BLOOD PH INCREASED [None]
  - BRONCHOPNEUMONIA [None]
  - C-REACTIVE PROTEIN INCREASED [None]
  - CONSTIPATION [None]
  - CYTOMEGALOVIRUS ANTIGEN POSITIVE [None]
  - DEHYDRATION [None]
  - DYSPNOEA EXERTIONAL [None]
  - FATIGUE [None]
  - GASTRIC CANCER [None]
  - GASTRITIS EROSIVE [None]
  - HAEMOGLOBIN DECREASED [None]
  - HYPERSENSITIVITY [None]
  - HYPOXIA [None]
  - INTERSTITIAL LUNG DISEASE [None]
  - MALAISE [None]
  - NEUTROPHIL COUNT DECREASED [None]
  - PCO2 DECREASED [None]
  - PLATELET COUNT DECREASED [None]
  - PNEUMONIA BACTERIAL [None]
  - PNEUMONIA PRIMARY ATYPICAL [None]
  - PNEUMONITIS [None]
  - PO2 DECREASED [None]
  - PYREXIA [None]
  - RED BLOOD CELL COUNT DECREASED [None]
  - RENAL INFARCT [None]
  - RESPIRATORY FAILURE [None]
  - SPUTUM CULTURE POSITIVE [None]
  - STAPHYLOCOCCAL INFECTION [None]
  - WHITE BLOOD CELL COUNT DECREASED [None]
